FAERS Safety Report 13759610 (Version 2)
Quarter: 2017Q3

REPORT INFORMATION
  Report Type: Spontaneous
  Country: US (occurrence: US)
  Receive Date: 20170717
  Receipt Date: 20170811
  Transmission Date: 20171127
  Serious: No
  Sender: FDA-Public Use
  Company Number: US-INCYTE CORPORATION-2017IN005339

PATIENT

DRUGS (2)
  1. JAKAFI [Suspect]
     Active Substance: RUXOLITINIB
     Indication: RENAL DISORDER
     Dosage: 10 MG, BID
     Route: 048
     Dates: start: 20150513
  2. JAKAFI [Suspect]
     Active Substance: RUXOLITINIB
     Indication: URETERAL DISORDER

REACTIONS (1)
  - Off label use [Unknown]
